FAERS Safety Report 22355667 (Version 1)
Quarter: 2023Q2

REPORT INFORMATION
  Report Type: Spontaneous
  Country: US (occurrence: None)
  Receive Date: 20230523
  Receipt Date: 20230523
  Transmission Date: 20230722
  Serious: No
  Sender: FDA-Public Use
  Company Number: None

PATIENT
  Age: 56 Year
  Sex: Female
  Weight: 72.9 kg

DRUGS (1)
  1. COSMETICS [Suspect]
     Active Substance: COSMETICS
     Indication: Dry skin
     Dosage: FREQUENCY : TWICE A DAY;?
     Route: 062
     Dates: start: 20230520, end: 20230523

REACTIONS (4)
  - Application site erythema [None]
  - Application site vesicles [None]
  - Application site pain [None]
  - Skin weeping [None]

NARRATIVE: CASE EVENT DATE: 20230522
